FAERS Safety Report 7012957-3 (Version None)
Quarter: 2010Q3

REPORT INFORMATION
  Report Type: 
  Country: None (occurrence: None)
  Receive Date: 20100924
  Receipt Date: 20100916
  Transmission Date: 20110219
  Serious: Yes (Hospitalization)
  Sender: FDA-Public Use
  Company Number: US-SANOFI-AVENTIS-2010SA056076

PATIENT
  Age: 64 Year
  Sex: Male

DRUGS (2)
  1. UROXATRAL [Suspect]
     Indication: URINARY RETENTION
     Route: 048
     Dates: start: 20100801, end: 20100801
  2. TARKA [Concomitant]

REACTIONS (3)
  - FALL [None]
  - LOSS OF CONSCIOUSNESS [None]
  - UPPER LIMB FRACTURE [None]
